FAERS Safety Report 4660069-6 (Version None)
Quarter: 2005Q2

REPORT INFORMATION
  Report Type: 
  Country: None (occurrence: None)
  Receive Date: 20050512
  Receipt Date: 20050112
  Transmission Date: 20051028
  Serious: No
  Sender: FDA-Public Use
  Company Number: US-GLAXOSMITHKLINE-A0540436A

PATIENT
  Age: 71 Year
  Sex: Female

DRUGS (2)
  1. RELAFEN [Suspect]
     Indication: RHEUMATOID ARTHRITIS
     Route: 048
     Dates: start: 20041201, end: 20050110
  2. METHOTREXATE [Concomitant]

REACTIONS (11)
  - ANXIETY [None]
  - DIZZINESS [None]
  - DRY MOUTH [None]
  - FATIGUE [None]
  - NAUSEA [None]
  - NERVOUSNESS [None]
  - PANIC REACTION [None]
  - READING DISORDER [None]
  - STOMACH DISCOMFORT [None]
  - TINNITUS [None]
  - VISUAL DISTURBANCE [None]
